FAERS Safety Report 5444492-8 (Version None)
Quarter: 2007Q3

REPORT INFORMATION
  Report Type: 
  Country: None (occurrence: None)
  Receive Date: 20070831
  Receipt Date: 20070823
  Transmission Date: 20080115
  Serious: Yes (Other)
  Sender: FDA-Public Use
  Company Number: CHPA2007US09014

PATIENT
  Age: 3 Year
  Sex: Male

DRUGS (1)
  1. TRIAMINIC DAY TIME COLD + COUGH (NCH) (DEXTROMETHORPHAN HYDROBROMIDE, [Suspect]
     Dosage: ONCE/SINGLE, ORAL
     Route: 048
     Dates: start: 20070823, end: 20070823

REACTIONS (4)
  - ACCIDENTAL DRUG INTAKE BY CHILD [None]
  - ERYTHEMA [None]
  - GAIT DISTURBANCE [None]
  - MYDRIASIS [None]
